FAERS Safety Report 8991593 (Version 2)
Quarter: 2013Q1

REPORT INFORMATION
  Report Type: Spontaneous
  Country: US (occurrence: US)
  Receive Date: 20121231
  Receipt Date: 20130116
  Transmission Date: 20140127
  Serious: No
  Sender: FDA-Public Use
  Company Number: US-BIOGENIDEC-2012BI063571

PATIENT
  Age: 48 Year
  Sex: Female

DRUGS (7)
  1. TYSABRI [Suspect]
     Indication: MULTIPLE SCLEROSIS
     Route: 042
     Dates: start: 20120709
  2. AVONEX [Concomitant]
     Indication: MOBILITY DECREASED
     Route: 030
     Dates: start: 20020718
  3. AVONEX [Concomitant]
     Indication: INTERVERTEBRAL DISC PROTRUSION
     Route: 030
     Dates: start: 20020718
  4. AVONEX [Concomitant]
     Indication: SPINAL COLUMN STENOSIS
     Route: 030
     Dates: start: 20020718
  5. AVONEX [Concomitant]
     Indication: SPINAL PAIN
     Route: 030
     Dates: start: 20020718
  6. COPAXONE [Concomitant]
     Indication: MULTIPLE SCLEROSIS
     Dates: start: 2002, end: 2012
  7. CHANTIX [Concomitant]
     Indication: EX-TOBACCO USER

REACTIONS (12)
  - Hypoaesthesia [Not Recovered/Not Resolved]
  - Temperature intolerance [Recovered/Resolved]
  - Premature menopause [Recovered/Resolved with Sequelae]
  - Cold sweat [Not Recovered/Not Resolved]
  - Spinal column stenosis [Not Recovered/Not Resolved]
  - Pain in extremity [Not Recovered/Not Resolved]
  - Paraesthesia [Not Recovered/Not Resolved]
  - Fungal infection [Recovered/Resolved]
  - Spinal pain [Not Recovered/Not Resolved]
  - Bronchitis [Recovered/Resolved]
  - Hot flush [Not Recovered/Not Resolved]
  - Malaise [Unknown]
